FAERS Safety Report 16857431 (Version 1)
Quarter: 2019Q3

REPORT INFORMATION
  Report Type: Spontaneous
  Country: CN (occurrence: CN)
  Receive Date: 20190926
  Receipt Date: 20190926
  Transmission Date: 20191005
  Serious: Yes (Other)
  Sender: FDA-Public Use
  Company Number: CN-ELEFSEE PHARMACEUTICALS INTERNATIONAL-CN-2019WTD000039

PATIENT
  Age: 33 Year
  Sex: Female

DRUGS (4)
  1. OXYTOCIN. [Suspect]
     Active Substance: OXYTOCIN
     Indication: LABOUR INDUCTION
     Dosage: 12 ML, PER HOUR
  2. FENTANYL. [Suspect]
     Active Substance: FENTANYL
     Indication: EPIDURAL ANALGESIA
     Dosage: 15 MG, UNK
     Route: 037
  3. OXYTOCIN. [Suspect]
     Active Substance: OXYTOCIN
     Dosage: 72 ML, PER HOUR
  4. BUPIVACAINE. [Suspect]
     Active Substance: BUPIVACAINE
     Indication: EPIDURAL ANALGESIA
     Dosage: 2.5 MG, UNK
     Route: 037

REACTIONS (2)
  - Uterine hypotonus [Recovered/Resolved]
  - Maternal exposure during delivery [Recovered/Resolved]
